FAERS Safety Report 5400670-5 (Version None)
Quarter: 2007Q3

REPORT INFORMATION
  Report Type: 
  Country: None (occurrence: None)
  Receive Date: 20070730
  Receipt Date: 20070718
  Transmission Date: 20080115
  Serious: Yes (Other)
  Sender: FDA-Public Use
  Company Number: US-ELI_LILLY_AND_COMPANY-US200707004394

PATIENT
  Age: 59 Year
  Sex: Male

DRUGS (2)
  1. CIALIS [Suspect]
     Dosage: 10 MG, AS NEEDED
     Dates: start: 20040101
  2. CIALIS [Suspect]
     Dosage: 20 MG, AS NEEDED

REACTIONS (2)
  - BACK PAIN [None]
  - VISUAL ACUITY REDUCED [None]
